FAERS Safety Report 7992546-4 (Version None)
Quarter: 2011Q4

REPORT INFORMATION
  Report Type: 
  Country: None (occurrence: None)
  Receive Date: 20111219
  Receipt Date: 20111214
  Transmission Date: 20120403
  Serious: Yes (Hospitalization)
  Sender: FDA-Public Use
  Company Number: PHHO2011PT019449

PATIENT
  Sex: Male
  Weight: 71.9 kg

DRUGS (15)
  1. MYFORTIC [Suspect]
     Indication: RENAL TRANSPLANT
     Dosage: 720 MG, BID
     Route: 048
     Dates: start: 20111109, end: 20111112
  2. PREDNISOLONE [Concomitant]
     Dosage: 17.5 MG, UNK
     Route: 048
     Dates: start: 20111202, end: 20111205
  3. PANTOPRAZOLE [Concomitant]
     Indication: PROPHYLAXIS AGAINST GASTROINTESTINAL ULCER
     Dosage: 40 MG, QD
     Route: 048
     Dates: start: 20111108, end: 20111110
  4. PROGRAF [Suspect]
     Indication: RENAL TRANSPLANT
     Dosage: 5 MG, BID
     Route: 048
     Dates: start: 20111109, end: 20111112
  5. METHYLPREDNISOLONE [Suspect]
     Dosage: 125 MG, UNK
     Route: 048
     Dates: start: 20111110
  6. PREDNISOLONE [Concomitant]
     Indication: IMMUNOSUPPRESSION
     Dosage: 20 MG, QD
     Route: 048
     Dates: start: 20111112, end: 20111201
  7. SIMULECT [Concomitant]
     Dosage: UNK
     Dates: start: 20111211
  8. METHYLPREDNISOLONE [Suspect]
     Dosage: 80 MG, UNK
     Route: 048
     Dates: start: 20111111
  9. PREDNISOLONE [Concomitant]
     Dosage: 15 MG, UNK
     Route: 048
     Dates: start: 20111206
  10. METHYLPREDNISOLONE [Suspect]
     Indication: RENAL TRANSPLANT
     Dosage: 500 MG, UNK
     Route: 048
     Dates: start: 20111108
  11. NIFEDIPINE [Concomitant]
     Indication: HYPERTENSION
     Dosage: 30 MG, BID
     Route: 048
     Dates: start: 20111109, end: 20111111
  12. COTRIM [Concomitant]
     Indication: INFECTION PROPHYLAXIS
     Dosage: 480 MG, QD
     Route: 048
     Dates: start: 20111109, end: 20111110
  13. METHYLPREDNISOLONE [Suspect]
     Dosage: 250 MG, UNK
     Route: 048
     Dates: start: 20111109
  14. CARVEDILOL [Concomitant]
     Indication: HYPERTENSION
     Dosage: 25 MG, BID
     Route: 048
     Dates: start: 20111109, end: 20111110
  15. SIMULECT [Concomitant]
     Dosage: UNK
     Dates: start: 20111207

REACTIONS (3)
  - CAPILLARITIS [None]
  - KIDNEY TRANSPLANT REJECTION [None]
  - ASPERGILLOSIS [None]
